FAERS Safety Report 5779375-7 (Version None)
Quarter: 2008Q2

REPORT INFORMATION
  Report Type: 
  Country: None (occurrence: None)
  Receive Date: 20080619
  Receipt Date: 20080304
  Transmission Date: 20081010
  Serious: No
  Sender: FDA-Public Use
  Company Number: US-ASTRAZENECA-2007UW15645

PATIENT
  Age: 84 Year
  Sex: Female

DRUGS (6)
  1. ATACAND [Suspect]
     Indication: HYPERTENSION
     Route: 048
  2. CAPTOPRIL [Concomitant]
  3. TENORMIN [Concomitant]
     Route: 048
  4. SYNTHROID [Concomitant]
  5. ATIVAN [Concomitant]
     Dosage: HS PRN
  6. NEXIUM [Concomitant]
     Route: 048

REACTIONS (3)
  - DIZZINESS [None]
  - DRY EYE [None]
  - DRY THROAT [None]
